FAERS Safety Report 10513710 (Version 3)
Quarter: 2015Q1

REPORT INFORMATION
  Report Type: Spontaneous
  Country: JP (occurrence: JP)
  Receive Date: 20141013
  Receipt Date: 20150116
  Transmission Date: 20150720
  Serious: Yes (Hospitalization)
  Sender: FDA-Public Use
  Company Number: JP-TEVA-514962USA

PATIENT
  Age: 79 Year
  Sex: Female

DRUGS (5)
  1. RITUXIMAB [Concomitant]
     Active Substance: RITUXIMAB
     Indication: B-CELL LYMPHOMA
     Route: 065
  2. BENDAMUSTINE HYDROCHLORIDE [Suspect]
     Active Substance: BENDAMUSTINE HYDROCHLORIDE
     Route: 042
     Dates: start: 20141008
  3. BENDAMUSTINE HYDROCHLORIDE [Suspect]
     Active Substance: BENDAMUSTINE HYDROCHLORIDE
     Route: 042
     Dates: start: 20141027
  4. BENDAMUSTINE HYDROCHLORIDE [Suspect]
     Active Substance: BENDAMUSTINE HYDROCHLORIDE
     Indication: B-CELL LYMPHOMA
     Route: 042
     Dates: start: 20140929
  5. BENDAMUSTINE HYDROCHLORIDE [Suspect]
     Active Substance: BENDAMUSTINE HYDROCHLORIDE
     Route: 042

REACTIONS (2)
  - Tumour lysis syndrome [Recovering/Resolving]
  - Infusion related reaction [Recovering/Resolving]

NARRATIVE: CASE EVENT DATE: 20140929
